FAERS Safety Report 20199460 (Version 2)
Quarter: 2022Q4

REPORT INFORMATION
  Report Type: Spontaneous
  Country: JP (occurrence: JP)
  Receive Date: 20211217
  Receipt Date: 20221012
  Transmission Date: 20230112
  Serious: Yes (Other)
  Sender: FDA-Public Use
  Company Number: JP-SYMBIO-202100496

PATIENT
  Age: 65 Year
  Sex: Male
  Weight: 72 kg

DRUGS (13)
  1. BENDAMUSTINE HYDROCHLORIDE [Suspect]
     Active Substance: BENDAMUSTINE HYDROCHLORIDE
     Indication: Non-Hodgkin^s lymphoma recurrent
     Dosage: 90 MG/M2 DAILY;
     Route: 041
     Dates: start: 20200227, end: 20200228
  2. BENDAMUSTINE HYDROCHLORIDE [Suspect]
     Active Substance: BENDAMUSTINE HYDROCHLORIDE
     Dosage: 90 MG/M2 DAILY;  (2ND CYCLE OF GB THERAPY)
     Route: 041
     Dates: start: 20200326, end: 20200327
  3. BENDAMUSTINE HYDROCHLORIDE [Suspect]
     Active Substance: BENDAMUSTINE HYDROCHLORIDE
     Dosage: 70 MG/M2 DAILY;
     Route: 041
     Dates: start: 20200507, end: 20200508
  4. BENDAMUSTINE HYDROCHLORIDE [Suspect]
     Active Substance: BENDAMUSTINE HYDROCHLORIDE
     Dosage: 70 MG/M2 DAILY;
     Route: 041
     Dates: start: 20200604, end: 20200605
  5. GAZYVA [Suspect]
     Active Substance: OBINUTUZUMAB
     Indication: B-cell lymphoma recurrent
     Dosage: 1000 MILLIGRAM DAILY;
     Route: 041
     Dates: start: 20200310, end: 20200310
  6. GAZYVA [Suspect]
     Active Substance: OBINUTUZUMAB
     Dosage: 1000 MILLIGRAM DAILY;
     Route: 041
     Dates: start: 20200331, end: 20200331
  7. GAZYVA [Suspect]
     Active Substance: OBINUTUZUMAB
     Dosage: 1000 MILLIGRAM DAILY;
     Route: 041
     Dates: start: 20200511, end: 20200511
  8. GAZYVA [Suspect]
     Active Substance: OBINUTUZUMAB
     Dosage: 1000 MILLIGRAM DAILY;
     Route: 041
     Dates: start: 20200629, end: 20200629
  9. VONOPRAZAN FUMARATE [Concomitant]
     Active Substance: VONOPRAZAN FUMARATE
     Indication: Prophylaxis
     Dosage: 10 MILLIGRAM DAILY;
     Route: 048
     Dates: start: 20200227, end: 20200907
  10. FLUCONAZOLE [Concomitant]
     Active Substance: FLUCONAZOLE
     Indication: Prophylaxis
     Dosage: 100 MILLIGRAM DAILY;
     Route: 041
     Dates: start: 20200227, end: 20200810
  11. ACYCLOVIR [Concomitant]
     Active Substance: ACYCLOVIR
     Indication: Prophylaxis
     Dosage: 200 MILLIGRAM DAILY;
     Route: 048
     Dates: start: 20200227, end: 20210628
  12. SULFAMETHOXAZOLE\TRIMETHOPRIM [Concomitant]
     Active Substance: SULFAMETHOXAZOLE\TRIMETHOPRIM
     Indication: Prophylaxis
     Dosage: 1 DOSAGE FORMS DAILY;
     Route: 048
     Dates: start: 20200227, end: 20210208
  13. FEBUXOSTAT [Concomitant]
     Active Substance: FEBUXOSTAT
     Indication: Prophylaxis
     Dosage: 20 MILLIGRAM DAILY;
     Route: 048
     Dates: start: 20200227, end: 20200810

REACTIONS (2)
  - Febrile neutropenia [Recovered/Resolved]
  - Thrombocytopenia [Recovered/Resolved]

NARRATIVE: CASE EVENT DATE: 20200408
